FAERS Safety Report 5902383-X (Version None)
Quarter: 2008Q3

REPORT INFORMATION
  Report Type: 
  Country: None (occurrence: None)
  Receive Date: 20080919
  Receipt Date: 20080703
  Transmission Date: 20090109
  Serious: No
  Sender: FDA-Public Use
  Company Number: US-WYE-H05066508

PATIENT
  Age: 46 Year
  Weight: 65.83 kg

DRUGS (4)
  1. PRISTIQ [Suspect]
     Indication: DEPRESSION
     Dosage: 50 MG 1X PER 1 DAY, ORAL
     Route: 048
     Dates: start: 20080628, end: 20080630
  2. XANAX [Concomitant]
  3. ESGIC (BUTALBITAL/CAFFEINE/PARACETAMOL) [Concomitant]
  4. MIRALAX [Concomitant]

REACTIONS (3)
  - AGITATION [None]
  - ANGER [None]
  - DEPRESSED MOOD [None]
